FAERS Safety Report 7246080-X (Version None)
Quarter: 2011Q1

REPORT INFORMATION
  Report Type: 
  Country: None (occurrence: None)
  Receive Date: 20110126
  Receipt Date: 20110121
  Transmission Date: 20110831
  Serious: Yes (Other)
  Sender: FDA-Public Use
  Company Number: A0848974A

PATIENT
  Age: 65 Year
  Sex: Female

DRUGS (3)
  1. AVANDARYL [Suspect]
     Route: 048
  2. AVANDAMET [Suspect]
     Route: 048
  3. AVANDIA [Suspect]
     Indication: DIABETES MELLITUS
     Dosage: 4MG UNKNOWN
     Route: 048

REACTIONS (1)
  - CEREBROVASCULAR ACCIDENT [None]
